FAERS Safety Report 9331589 (Version 1)
Quarter: 2013Q2

REPORT INFORMATION
  Report Type: Spontaneous
  Country: DK (occurrence: DK)
  Receive Date: 20130605
  Receipt Date: 20130605
  Transmission Date: 20140414
  Serious: Yes (Other)
  Sender: FDA-Public Use
  Company Number: DK-ASTRAZENECA-2013SE37504

PATIENT
  Age: 27192 Day
  Sex: Female

DRUGS (3)
  1. ATACAND [Suspect]
     Route: 048
  2. ATACAND [Suspect]
     Route: 048
     Dates: start: 20130517, end: 20130524
  3. ATACAND [Suspect]
     Route: 048
     Dates: start: 20130525

REACTIONS (11)
  - Thrombosis [Unknown]
  - Dyspnoea [Recovered/Resolved]
  - Nausea [Unknown]
  - Vertigo [Not Recovered/Not Resolved]
  - Paraesthesia [Not Recovered/Not Resolved]
  - Paraesthesia oral [Unknown]
  - Tremor [Unknown]
  - Blood pressure decreased [Unknown]
  - Cough [Recovered/Resolved]
  - Intentional drug misuse [Unknown]
  - Drug dose omission [Unknown]
